FAERS Safety Report 15211224 (Version 1)
Quarter: 2018Q3

REPORT INFORMATION
  Report Type: Spontaneous
  Country: US (occurrence: US)
  Receive Date: 20180701
  Receipt Date: 20180701
  Transmission Date: 20181010
  Serious: No
  Sender: FDA-Public Use
  Company Number: None

PATIENT
  Age: 72 Year
  Sex: Female
  Weight: 51.75 kg

DRUGS (5)
  1. REFRESH TEARS [Suspect]
     Active Substance: CARBOXYMETHYLCELLULOSE SODIUM
     Indication: DRY EYE
     Dosage: ?          OTHER FREQUENCY:ONCE;?
     Route: 047
     Dates: start: 20180701, end: 20180701
  2. HYDROCODONE [Concomitant]
     Active Substance: HYDROCODONE
  3. BUTALBITAL [Concomitant]
     Active Substance: BUTALBITAL
  4. LEFLUNOMIDE. [Concomitant]
     Active Substance: LEFLUNOMIDE
  5. MULTIPLE, ANTI?OXIDANT [Concomitant]

REACTIONS (2)
  - Ocular hyperaemia [None]
  - Eye pain [None]

NARRATIVE: CASE EVENT DATE: 20180701
